FAERS Safety Report 22117687 (Version 1)
Quarter: 2023Q1

REPORT INFORMATION
  Report Type: Spontaneous
  Country: US (occurrence: US)
  Receive Date: 20230321
  Receipt Date: 20230321
  Transmission Date: 20230418
  Serious: Yes (Hospitalization)
  Sender: FDA-Public Use
  Company Number: US-BEH-2023156539

PATIENT
  Age: 22 Year
  Sex: Female

DRUGS (1)
  1. HAEGARDA [Suspect]
     Active Substance: HUMAN C1-ESTERASE INHIBITOR
     Indication: Hereditary angioedema
     Dosage: 3000 INTERNATIONAL UNIT
     Route: 058

REACTIONS (2)
  - Ovarian cyst ruptured [Unknown]
  - Haemorrhagic ovarian cyst [Unknown]

NARRATIVE: CASE EVENT DATE: 20230308
